FAERS Safety Report 6401073-7 (Version None)
Quarter: 2009Q4

REPORT INFORMATION
  Report Type: 
  Country: None (occurrence: None)
  Receive Date: 20091009
  Receipt Date: 20091009
  Transmission Date: 20100525
  Serious: Yes (Other)
  Sender: FDA-Public Use
  Company Number: None

PATIENT
  Age: 72 Year
  Sex: Female
  Weight: 79.3795 kg

DRUGS (1)
  1. RECLAST [Suspect]
     Indication: OSTEOPOROSIS PROPHYLAXIS
     Dosage: 5 MG ONCE -ANNUAL RX- IV
     Route: 042
     Dates: start: 20090728, end: 20090728

REACTIONS (11)
  - DYSPNOEA EXERTIONAL [None]
  - GAIT DISTURBANCE [None]
  - GINGIVAL BLEEDING [None]
  - GINGIVAL PAIN [None]
  - INFLUENZA [None]
  - MORBID THOUGHTS [None]
  - MUSCLE DISORDER [None]
  - MUSCULAR WEAKNESS [None]
  - MYALGIA [None]
  - PAIN [None]
  - THERAPEUTIC AGENT TOXICITY [None]
